FAERS Safety Report 25399253 (Version 1)
Quarter: 2025Q2

REPORT INFORMATION
  Report Type: Spontaneous
  Country: US (occurrence: US)
  Receive Date: 20250605
  Receipt Date: 20250605
  Transmission Date: 20250717
  Serious: No
  Sender: KYOWA
  Company Number: US-KYOWAKIRIN-2025KK010500

PATIENT

DRUGS (1)
  1. CRYSVITA [Suspect]
     Active Substance: BUROSUMAB-TWZA
     Indication: Hereditary hypophosphataemic rickets
     Dosage: 30 MG, 1X/4 WEEKS
     Route: 058

REACTIONS (5)
  - Mobility decreased [Unknown]
  - Neck pain [Unknown]
  - Arthralgia [Unknown]
  - Arthralgia [Unknown]
  - Back pain [Unknown]
